FAERS Safety Report 6038216-3 (Version None)
Quarter: 2009Q1

REPORT INFORMATION
  Report Type: 
  Country: None (occurrence: None)
  Receive Date: 20090115
  Receipt Date: 20090105
  Transmission Date: 20090719
  Serious: Yes (Other)
  Sender: FDA-Public Use
  Company Number: AT-PFIZER INC-2008094763

PATIENT

DRUGS (7)
  1. SUTENT [Suspect]
     Indication: METASTATIC RENAL CELL CARCINOMA
     Dosage: 50 MG, UNK
     Route: 048
     Dates: start: 20080307, end: 20081101
  2. SUTENT [Suspect]
     Indication: METASTASES TO LUNG
  3. MAGNESIUM SULFATE [Concomitant]
     Dosage: 400 MG, 1X/DAY
  4. ASPIRIN [Concomitant]
     Dosage: 100 MG, 1X/DAY
  5. NEBIVOLOL [Concomitant]
     Dosage: 5 MG, 1X/DAY
  6. PANTOPRAZOLE SODIUM [Concomitant]
  7. SUCRALAN [Concomitant]
     Dosage: 1G/5ML

REACTIONS (24)
  - AGEUSIA [None]
  - ANOREXIA [None]
  - ARTHRALGIA [None]
  - CHEST PAIN [None]
  - CHOKING [None]
  - DEAFNESS [None]
  - DEHYDRATION [None]
  - DIARRHOEA [None]
  - DISEASE PROGRESSION [None]
  - DRY SKIN [None]
  - EPISTAXIS [None]
  - FATIGUE [None]
  - FEELING COLD [None]
  - FLATULENCE [None]
  - HAIR COLOUR CHANGES [None]
  - HEADACHE [None]
  - METASTASES TO CENTRAL NERVOUS SYSTEM [None]
  - MYALGIA [None]
  - PAIN IN EXTREMITY [None]
  - RASH PUSTULAR [None]
  - SKIN DISCOLOURATION [None]
  - SLEEP DISORDER [None]
  - TONGUE DISORDER [None]
  - WEIGHT DECREASED [None]
